FAERS Safety Report 7409543-X (Version None)
Quarter: 2011Q2

REPORT INFORMATION
  Report Type: 
  Country: None (occurrence: None)
  Receive Date: 20110412
  Receipt Date: 20110407
  Transmission Date: 20111010
  Serious: Yes (Hospitalization)
  Sender: FDA-Public Use
  Company Number: CA-MERCK-1104USA01011

PATIENT
  Age: 16 Year
  Sex: Female

DRUGS (1)
  1. CANCIDAS [Suspect]
     Route: 065
     Dates: start: 20110401

REACTIONS (2)
  - OVERDOSE [None]
  - SHOCK [None]
